FAERS Safety Report 20695326 (Version 1)
Quarter: 2022Q2

REPORT INFORMATION
  Report Type: Spontaneous
  Country: NL (occurrence: NL)
  Receive Date: 20220411
  Receipt Date: 20220411
  Transmission Date: 20220720
  Serious: Yes (Life-Threatening, Hospitalization, Other)
  Sender: FDA-Public Use
  Company Number: NL-JUBILANT CADISTA PHARMACEUTICALS-2022JUB00101

PATIENT
  Age: 30 Year
  Sex: Female

DRUGS (1)
  1. LAMOTRIGINE [Suspect]
     Active Substance: LAMOTRIGINE
     Route: 065

REACTIONS (5)
  - Cardiogenic shock [Recovering/Resolving]
  - Cardiac arrest [Recovering/Resolving]
  - Pericarditis [Unknown]
  - Eosinophilic myocarditis [Unknown]
  - Drug reaction with eosinophilia and systemic symptoms [Unknown]
